FAERS Safety Report 5740729-6 (Version None)
Quarter: 2008Q2

REPORT INFORMATION
  Report Type: 
  Country: None (occurrence: None)
  Receive Date: 20080516
  Receipt Date: 20080506
  Transmission Date: 20081010
  Serious: Yes (Death)
  Sender: FDA-Public Use
  Company Number: GB-PFIZER INC-2003174216GB

PATIENT
  Age: 19 Year
  Sex: Male

DRUGS (6)
  1. PHENYTOIN [Suspect]
  2. IBUPROFEN TABLETS [Suspect]
  3. CYCLOBENZAPRINE HCL [Suspect]
  4. PHENYLPROPANOLAMINE [Suspect]
  5. CHLORPHENIRAMINE MALEATE [Suspect]
  6. LIGNOCAINE [Suspect]

REACTIONS (3)
  - METABOLIC ACIDOSIS [None]
  - OVERDOSE [None]
  - TACHYCARDIA [None]
